FAERS Safety Report 21097726 (Version 6)
Quarter: 2023Q1

REPORT INFORMATION
  Report Type: Report from Study
  Country: CO (occurrence: CO)
  Receive Date: 20220719
  Receipt Date: 20230119
  Transmission Date: 20230418
  Serious: Yes (Hospitalization, Other)
  Sender: FDA-Public Use
  Company Number: CO-AMGEN-COLSL2022119082

PATIENT
  Age: 85 Year
  Sex: Female

DRUGS (4)
  1. NPLATE [Suspect]
     Active Substance: ROMIPLOSTIM
     Indication: Immune thrombocytopenia
     Dosage: 250 MICROGRAM, QWK
     Route: 058
     Dates: start: 20170901
  2. NPLATE [Suspect]
     Active Substance: ROMIPLOSTIM
     Dosage: 250 MICROGRAM, Q2WK
     Route: 058
  3. NPLATE [Suspect]
     Active Substance: ROMIPLOSTIM
     Dosage: 250 MILLIGRAM EVEY 12 DAYS
     Route: 058
  4. NPLATE [Suspect]
     Active Substance: ROMIPLOSTIM
     Dosage: 240 MILLIGRAM/OTHER
     Route: 058

REACTIONS (7)
  - Thrombocytosis [Recovering/Resolving]
  - Choking [Unknown]
  - Unevaluable event [Recovered/Resolved]
  - Eye contusion [Not Recovered/Not Resolved]
  - Contusion [Not Recovered/Not Resolved]
  - Amnesia [Not Recovered/Not Resolved]
  - Hypertension [Recovered/Resolved]
